FAERS Safety Report 14488714 (Version 2)
Quarter: 2018Q1

REPORT INFORMATION
  Report Type: Report from Study
  Country: CA (occurrence: CA)
  Receive Date: 20180205
  Receipt Date: 20180207
  Transmission Date: 20180509
  Serious: Yes (Death, Other)
  Sender: FDA-Public Use
  Company Number: CA-GILEAD-2018-0317487

PATIENT
  Age: 72 Year
  Sex: Male

DRUGS (1)
  1. SOFOSBUVIR W/VELPATASVIR [Suspect]
     Active Substance: SOFOSBUVIR\VELPATASVIR
     Indication: CHRONIC HEPATITIS C
     Dosage: 400 MG, UNK
     Route: 048
     Dates: start: 20180106, end: 20180121

REACTIONS (3)
  - Intentional product use issue [Not Recovered/Not Resolved]
  - Myocardial infarction [Fatal]
  - Dyspepsia [Unknown]

NARRATIVE: CASE EVENT DATE: 201801
